FAERS Safety Report 7914749-7 (Version None)
Quarter: 2011Q4

REPORT INFORMATION
  Report Type: 
  Country: None (occurrence: None)
  Receive Date: 20111115
  Receipt Date: 20111107
  Transmission Date: 20120403
  Serious: Yes (Other)
  Sender: FDA-Public Use
  Company Number: GXKR2011DE003261

PATIENT

DRUGS (1)
  1. PACLITAXEL [Suspect]
     Indication: BREAST CANCER FEMALE
     Route: 042
     Dates: start: 20101201, end: 20110330

REACTIONS (1)
  - VITH NERVE PARALYSIS [None]
